FAERS Safety Report 24131256 (Version 1)
Quarter: 2024Q3

REPORT INFORMATION
  Report Type: Report from Study
  Country: IN (occurrence: IN)
  Receive Date: 20240724
  Receipt Date: 20240724
  Transmission Date: 20241017
  Serious: Yes (Death, Other)
  Sender: CIPLA
  Company Number: IN-CIPLA LTD.-2024IN07681

PATIENT

DRUGS (4)
  1. ATORVASTATIN [Suspect]
     Active Substance: ATORVASTATIN
     Indication: Product used for unknown indication
     Dosage: DOSE- 1 (UNSPECIFIED UNITS), FREQUENCY- 1 (UNSPECIFIED UNITS)
     Route: 065
  2. TELMA CT [Concomitant]
     Indication: Product used for unknown indication
     Dosage: 40/6.25, UNK
     Route: 065
  3. SURBEX XT [Concomitant]
     Indication: Product used for unknown indication
     Dosage: UNK
     Route: 065
  4. PRICHEK-M [Concomitant]
     Indication: Product used for unknown indication
     Dosage: 1/500, UNK
     Route: 065

REACTIONS (1)
  - Metastatic neoplasm [Fatal]
